FAERS Safety Report 9866417 (Version 1)
Quarter: 2014Q1

REPORT INFORMATION
  Report Type: Report from Study
  Country: CA (occurrence: CA)
  Receive Date: 20140204
  Receipt Date: 20140204
  Transmission Date: 20141002
  Serious: Yes (Death)
  Sender: FDA-Public Use
  Company Number: CA-ROCHE-1343732

PATIENT
  Sex: Male
  Weight: 99.8 kg

DRUGS (4)
  1. RITUXAN [Suspect]
     Indication: PALINDROMIC RHEUMATISM
     Route: 042
     Dates: start: 20100101, end: 20130828
  2. ZOPICLONE [Concomitant]
  3. AMITRIPTYLINE [Concomitant]
     Route: 065
  4. LIPITOR [Concomitant]

REACTIONS (1)
  - Death [Fatal]
